FAERS Safety Report 5128392-9 (Version None)
Quarter: 2006Q4

REPORT INFORMATION
  Report Type: 
  Country: None (occurrence: None)
  Receive Date: 20061011
  Receipt Date: 20060925
  Transmission Date: 20070319
  Serious: Yes (Hospitalization, Other)
  Sender: FDA-Public Use
  Company Number: 2006BH013690

PATIENT
  Weight: 4.15 kg

DRUGS (1)
  1. OXYTOCIN [Suspect]
     Indication: MATERNAL DRUGS AFFECTING FOETUS

REACTIONS (9)
  - APGAR SCORE LOW [None]
  - BRADYCARDIA FOETAL [None]
  - CAESAREAN SECTION [None]
  - CEREBRAL PALSY [None]
  - CONVULSION NEONATAL [None]
  - DRUG EXPOSURE DURING PREGNANCY [None]
  - METABOLIC ACIDOSIS [None]
  - NEONATAL ASPHYXIA [None]
  - RESUSCITATION [None]
